FAERS Safety Report 11295003 (Version 1)
Quarter: 2015Q3

REPORT INFORMATION
  Report Type: Spontaneous
  Country: KR (occurrence: KR)
  Receive Date: 20150723
  Receipt Date: 20150723
  Transmission Date: 20151125
  Serious: Yes (Other)
  Sender: FDA-Public Use
  Company Number: KR-ACCORD-032372

PATIENT
  Age: 55 Year
  Sex: Female

DRUGS (2)
  1. PACLITAXEL/PACLITAXEL LIPOSOME [Suspect]
     Active Substance: PACLITAXEL
     Indication: BREAST CANCER METASTATIC
     Dosage: IN 1ST CYCLE,RECEIVED PACLITAXEL 175 MG/M2 OVER 24 HOURS, IN 2ND CYCLE REDUCED DOSE TO 80MG/M2/WEEK.
     Route: 042
  2. TRASTUZUMAB [Suspect]
     Active Substance: TRASTUZUMAB
     Indication: BREAST CANCER METASTATIC

REACTIONS (3)
  - Drug eruption [Recovered/Resolved]
  - Anaemia [Unknown]
  - Eosinophilia [Unknown]
